FAERS Safety Report 9187298 (Version 1)
Quarter: 2013Q1

REPORT INFORMATION
  Report Type: Spontaneous
  Country: US (occurrence: US)
  Receive Date: 20130325
  Receipt Date: 20130325
  Transmission Date: 20140127
  Serious: Yes (Other)
  Sender: FDA-Public Use
  Company Number: PHEH2013US006594

PATIENT
  Sex: Female

DRUGS (2)
  1. DIOVAN [Suspect]
     Indication: HYPERTENSION
     Dosage: 320 MG, QD
     Route: 048
  2. ANTIALLERGIC AGENTS, EXCL CORTICOSTEROIDS [Concomitant]
     Indication: HYPERSENSITIVITY

REACTIONS (2)
  - Ankle fracture [Recovering/Resolving]
  - Fall [Recovering/Resolving]
